FAERS Safety Report 8216188 (Version 9)
Quarter: 2013Q2

REPORT INFORMATION
  Report Type: Spontaneous
  Country: US (occurrence: US)
  Receive Date: 20111031
  Receipt Date: 20130514
  Transmission Date: 20140414
  Serious: Yes (Hospitalization, Disabling, Other)
  Sender: FDA-Public Use
  Company Number: US-009507513-1110USA04475

PATIENT
  Sex: Female
  Weight: 78.93 kg

DRUGS (4)
  1. FOSAMAX [Suspect]
     Indication: OSTEOPOROSIS
     Dosage: 70 MG, UNK
     Route: 048
     Dates: start: 20041028, end: 20050214
  2. BONIVA [Suspect]
     Indication: OSTEOPOROSIS
     Dosage: 150 MG, UNK
     Dates: start: 20051026, end: 20060314
  3. ACTONEL [Suspect]
     Indication: OSTEOPOROSIS
     Dosage: 35 MG, UNK
     Dates: start: 20050214, end: 20051026
  4. LIPITOR [Concomitant]
     Indication: BLOOD CHOLESTEROL INCREASED
     Dosage: UNK
     Dates: start: 2005

REACTIONS (67)
  - Humerus fracture [Unknown]
  - Multiple fractures [Not Recovered/Not Resolved]
  - Low turnover osteopathy [Not Recovered/Not Resolved]
  - Arthropathy [Unknown]
  - Sinusitis [Unknown]
  - Epilepsy [Not Recovered/Not Resolved]
  - Convulsion [Unknown]
  - Bradycardia [Unknown]
  - Osteonecrosis of jaw [Unknown]
  - Dental caries [Unknown]
  - Tooth disorder [Unknown]
  - Anxiety [Unknown]
  - Sensitivity of teeth [Unknown]
  - Breath odour [Unknown]
  - Toothache [Unknown]
  - Tooth crowding [Unknown]
  - Adverse event [Unknown]
  - Bruxism [Unknown]
  - Bone density decreased [Unknown]
  - Periodontal disease [Unknown]
  - Dental plaque [Unknown]
  - Herpes zoster [Unknown]
  - Hypertrophy of tongue papillae [Unknown]
  - Oral lichen planus [Unknown]
  - Pemphigus [Unknown]
  - Pemphigoid [Unknown]
  - Back disorder [Unknown]
  - Tongue haemorrhage [Unknown]
  - Pulpitis dental [Unknown]
  - Dental caries [Unknown]
  - Tooth disorder [Unknown]
  - Fatigue [Unknown]
  - Paranasal sinus mucosal hypertrophy [Unknown]
  - Depression [Recovering/Resolving]
  - Liver function test abnormal [Not Recovered/Not Resolved]
  - Acute sinusitis [Unknown]
  - Intervertebral disc protrusion [Unknown]
  - Nasal septum deviation [Unknown]
  - Endocrine test abnormal [Unknown]
  - Sleep disorder [Unknown]
  - Epistaxis [Not Recovered/Not Resolved]
  - Cardiac failure congestive [Unknown]
  - Intervertebral disc protrusion [Unknown]
  - Blood glucose abnormal [Unknown]
  - Pollakiuria [Unknown]
  - Urinary tract infection [Unknown]
  - Calcium metabolism disorder [Not Recovered/Not Resolved]
  - Adverse drug reaction [Unknown]
  - Dysuria [Unknown]
  - Osteoarthritis [Unknown]
  - Sleep apnoea syndrome [Not Recovered/Not Resolved]
  - Weight increased [Unknown]
  - Glossitis [Unknown]
  - Dry mouth [Unknown]
  - Spinal fracture [Unknown]
  - Dry skin [Unknown]
  - Adverse event [Unknown]
  - Hypothyroidism [Unknown]
  - Thoracic vertebral fracture [Unknown]
  - Alopecia [Unknown]
  - Neck pain [Unknown]
  - Musculoskeletal pain [Unknown]
  - Rash [Unknown]
  - Oedema peripheral [Unknown]
  - Dysgeusia [Unknown]
  - Drug ineffective [Unknown]
  - Malaise [Unknown]
